FAERS Safety Report 8232834 (Version 2)
Quarter: 2013Q1

REPORT INFORMATION
  Report Type: Spontaneous
  Country: VE (occurrence: VE)
  Receive Date: 20111107
  Receipt Date: 20130326
  Transmission Date: 20140127
  Serious: Yes (Hospitalization)
  Sender: FDA-Public Use
  Company Number: PHHY2011VE097105

PATIENT
  Age: 74 Year
  Sex: Female

DRUGS (12)
  1. ACLASTA [Suspect]
     Indication: OSTEOPOROSIS
     Dosage: 5 MG, YEARLY
     Route: 042
     Dates: start: 2009
  2. ACLASTA [Suspect]
     Dosage: 5 MG, YEARLY
     Route: 042
     Dates: start: 20101031
  3. DIOVAN [Concomitant]
     Indication: HYPERTENSION
     Dosage: 160 MG, UNK
     Route: 048
     Dates: start: 2011
  4. AMOXICILINA + CLAVULANICO [Concomitant]
     Dosage: 875 MG, UNK
     Route: 048
     Dates: start: 2011
  5. VITAMIN C [Concomitant]
     Dosage: UNK UKN, UNK
     Route: 048
  6. GLUCOSAMINE [Concomitant]
     Indication: OSTEOPOROSIS
     Dosage: 500 MG, UNK
     Route: 048
  7. FORADILE [Concomitant]
     Indication: ASTHMA
     Dosage: TWO INHALATIONS DAILY
     Dates: start: 2011
  8. VITAMIN A [Concomitant]
     Dosage: UNK UKN, UNK
  9. DOLGESIC [Concomitant]
     Indication: PAIN
     Dosage: UNK UKN, TID
  10. LORATADINE [Concomitant]
     Indication: HYPERSENSITIVITY
     Dosage: UNK UKN, UNK
  11. CELESTAMIN [Concomitant]
     Indication: HYPERSENSITIVITY
     Dosage: 0.25 MG, UNK
  12. CALCORT [Concomitant]
     Indication: COUGH
     Dosage: UNK UKN, UNK

REACTIONS (6)
  - Infection [Recovered/Resolved]
  - Facial pain [Recovering/Resolving]
  - Face oedema [Recovering/Resolving]
  - Wound [Recovering/Resolving]
  - Blood pressure abnormal [Recovered/Resolved]
  - Hypersensitivity [Recovered/Resolved]
